FAERS Safety Report 12632795 (Version 2)
Quarter: 2016Q3

REPORT INFORMATION
  Report Type: Spontaneous
  Country: US (occurrence: US)
  Receive Date: 20160808
  Receipt Date: 20160808
  Transmission Date: 20161109
  Serious: No
  Sender: FDA-Public Use
  Company Number: US-BEH-2015056998

PATIENT
  Sex: Male
  Weight: 67 kg

DRUGS (23)
  1. DIPHENHYDRAMINE. [Concomitant]
     Active Substance: DIPHENHYDRAMINE
  2. QUININE SULFATE. [Concomitant]
     Active Substance: QUININE SULFATE
  3. KIRKLAND SIGNATURE ALLER TEC ALLERGY [Concomitant]
     Active Substance: CETIRIZINE HYDROCHLORIDE
  4. FINASTERIDE. [Concomitant]
     Active Substance: FINASTERIDE
  5. MAGNESIUM [Concomitant]
     Active Substance: MAGNESIUM
  6. HIZENTRA [Suspect]
     Active Substance: HUMAN IMMUNOGLOBULIN G
     Route: 058
  7. LIDOCAINE/PRILOCAINE [Concomitant]
     Active Substance: LIDOCAINE\PRILOCAINE
  8. AMIODARONE [Concomitant]
     Active Substance: AMIODARONE
  9. ALLOPURINOL. [Concomitant]
     Active Substance: ALLOPURINOL
  10. VITAMIN B12 [Concomitant]
     Active Substance: CYANOCOBALAMIN
  11. ASPIRIN. [Concomitant]
     Active Substance: ASPIRIN
  12. IRON [Concomitant]
     Active Substance: IRON
  13. ASTEPRO [Concomitant]
     Active Substance: AZELASTINE HYDROCHLORIDE
  14. SYNTHROID [Concomitant]
     Active Substance: LEVOTHYROXINE SODIUM
  15. WARFARIN [Concomitant]
     Active Substance: WARFARIN
  16. FISH OIL [Concomitant]
     Active Substance: FISH OIL
  17. HIZENTRA [Suspect]
     Active Substance: HUMAN IMMUNOGLOBULIN G
     Indication: IMMUNODEFICIENCY COMMON VARIABLE
     Route: 058
  18. EPIPEN [Concomitant]
     Active Substance: EPINEPHRINE
  19. CENTRUM SILVER ULTRA MEN^S [Concomitant]
  20. OMEPRAZOLE. [Concomitant]
     Active Substance: OMEPRAZOLE
  21. ZANTAC [Concomitant]
     Active Substance: RANITIDINE HYDROCHLORIDE
  22. HIZENTRA [Suspect]
     Active Substance: HUMAN IMMUNOGLOBULIN G
     Route: 058
     Dates: start: 2010
  23. WELCHOL [Concomitant]
     Active Substance: COLESEVELAM HYDROCHLORIDE

REACTIONS (1)
  - Urinary tract infection [Unknown]
